FAERS Safety Report 7149700-3 (Version None)
Quarter: 2010Q4

REPORT INFORMATION
  Report Type: 
  Country: None (occurrence: None)
  Receive Date: 20101210
  Receipt Date: 20101201
  Transmission Date: 20110411
  Serious: Yes (Hospitalization)
  Sender: FDA-Public Use
  Company Number: US-BIOGENIDEC-2009BI023730

PATIENT
  Age: 48 Year
  Sex: Female
  Weight: 63 kg

DRUGS (1)
  1. TYSABRI [Suspect]
     Indication: MULTIPLE SCLEROSIS
     Route: 042
     Dates: start: 20080417, end: 20100101

REACTIONS (8)
  - DEPRESSION [None]
  - JOINT DISLOCATION [None]
  - PALATAL OEDEMA [None]
  - PHARYNGEAL OEDEMA [None]
  - PNEUMONIA [None]
  - TENDINOUS CONTRACTURE [None]
  - THROMBOSIS [None]
  - URINARY TRACT INFECTION [None]
